FAERS Safety Report 24616661 (Version 1)
Quarter: 2024Q4

REPORT INFORMATION
  Report Type: Spontaneous
  Country: JP (occurrence: JP)
  Receive Date: 20241114
  Receipt Date: 20241114
  Transmission Date: 20250115
  Serious: Yes (Hospitalization)
  Sender: CHEPLAPHARM
  Company Number: JP-CP_KK-2024JP001948

PATIENT
  Age: 75 Year
  Sex: Female

DRUGS (4)
  1. CAPECITABINE [Interacting]
     Active Substance: CAPECITABINE
     Indication: Breast cancer recurrent
     Dosage: REDUCED BY ONE STEP
     Route: 048
  2. CAPECITABINE [Interacting]
     Active Substance: CAPECITABINE
     Indication: Breast cancer recurrent
     Dosage: REDUCED BY TWO STEPS
     Route: 048
  3. WARFARIN POTASSIUM [Interacting]
     Active Substance: WARFARIN POTASSIUM
     Indication: Mitral valve replacement
     Dosage: 3 MILLIGRAM/DAY?DAILY DOSE: 3 MILLIGRAM
     Route: 048
  4. PRASUGREL HYDROCHLORIDE [Concomitant]
     Active Substance: PRASUGREL HYDROCHLORIDE
     Indication: Coronary arterial stent insertion
     Dosage: UNK
     Route: 048

REACTIONS (4)
  - International normalised ratio increased [Recovering/Resolving]
  - Haematuria [Recovering/Resolving]
  - Haemorrhage subcutaneous [Recovering/Resolving]
  - Labelled drug-drug interaction issue [Recovering/Resolving]
